FAERS Safety Report 13403196 (Version 1)
Quarter: 2017Q2

REPORT INFORMATION
  Report Type: Spontaneous
  Country: US (occurrence: US)
  Receive Date: 20170404
  Receipt Date: 20170404
  Transmission Date: 20170830
  Serious: Yes (Disabling)
  Sender: FDA-Public Use
  Company Number: None

PATIENT
  Age: 68 Year
  Sex: Female
  Weight: 52.65 kg

DRUGS (4)
  1. CENTRUM [Concomitant]
     Active Substance: VITAMINS
  2. IBANDRONATE SODIUM TABLETS [Suspect]
     Active Substance: IBANDRONATE SODIUM
     Indication: OSTEOPOROSIS
     Dosage: ?          QUANTITY:1 TABLET(S);?
     Route: 048
  3. ENALAPRIL [Concomitant]
     Active Substance: ENALAPRIL
  4. HYDROCHLOROTHIAZIDE. [Concomitant]
     Active Substance: HYDROCHLOROTHIAZIDE

REACTIONS (2)
  - Drug ineffective [None]
  - Back pain [None]

NARRATIVE: CASE EVENT DATE: 20161201
